FAERS Safety Report 6006872-1 (Version None)
Quarter: 2008Q4

REPORT INFORMATION
  Report Type: 
  Country: None (occurrence: None)
  Receive Date: 20081217
  Receipt Date: 20071112
  Transmission Date: 20090506
  Serious: No
  Sender: FDA-Public Use
  Company Number: US-ASTRAZENECA-2007UW26269

PATIENT
  Age: 64 Year
  Sex: Male
  Weight: 87.5 kg

DRUGS (7)
  1. CRESTOR [Suspect]
     Indication: BLOOD CHOLESTEROL INCREASED
     Route: 048
     Dates: start: 20060705
  2. CRESTOR [Suspect]
     Route: 048
     Dates: start: 20071029
  3. ZETIA [Concomitant]
  4. TOPROL-XL [Concomitant]
  5. COENZYME Q10 [Concomitant]
  6. ASPIRIN [Concomitant]
  7. NEXIUM [Concomitant]

REACTIONS (4)
  - CARDIAC FLUTTER [None]
  - DYSPEPSIA [None]
  - REFLUX OESOPHAGITIS [None]
  - TINNITUS [None]
